FAERS Safety Report 7055421-8 (Version None)
Quarter: 2010Q4

REPORT INFORMATION
  Report Type: 
  Country: None (occurrence: None)
  Receive Date: 20101021
  Receipt Date: 20101011
  Transmission Date: 20110411
  Serious: Yes (Death, Other)
  Sender: FDA-Public Use
  Company Number: US-BAYER-201032167NA

PATIENT
  Age: 54 Year
  Sex: Female

DRUGS (2)
  1. NEXAVAR [Suspect]
     Indication: HEPATIC NEOPLASM MALIGNANT
     Dosage: TOTAL DAILY DOSE: 800 MG  UNIT DOSE: 200 MG
     Route: 048
     Dates: start: 20100828
  2. NARCOTIC PAIN MEDICATIONS [Concomitant]

REACTIONS (4)
  - CONFUSIONAL STATE [None]
  - DEATH [None]
  - HALLUCINATION [None]
  - VISION BLURRED [None]
